FAERS Safety Report 4675216-X (Version None)
Quarter: 2005Q2

REPORT INFORMATION
  Report Type: 
  Country: None (occurrence: None)
  Receive Date: 20050526
  Receipt Date: 20050513
  Transmission Date: 20051028
  Serious: Yes (Death, Hospitalization)
  Sender: FDA-Public Use
  Company Number: D-A2501011-3013

PATIENT
  Age: 78 Year
  Sex: Male
  Weight: 65 kg

DRUGS (9)
  1. DONEPEZIL HCL [Suspect]
     Indication: DEMENTIA ALZHEIMER'S TYPE
     Dosage: SEE IMAGE
     Route: 048
     Dates: start: 20030327, end: 20030423
  2. DONEPEZIL HCL [Suspect]
     Indication: DEMENTIA ALZHEIMER'S TYPE
     Dosage: SEE IMAGE
     Route: 048
     Dates: start: 20030424, end: 20030718
  3. ASPIRIN [Concomitant]
  4. NITROPATCH (GLYCERYL TRINITRATE) [Concomitant]
  5. DICETEL (PINAVERIUM BROMIDE) [Concomitant]
  6. ZINC (ZINC) [Concomitant]
  7. GINKGO BILOBA (GINKGO BILOBA) [Concomitant]
  8. TYLENOL [Concomitant]
  9. VITAMIN B12 [Concomitant]

REACTIONS (6)
  - CEREBRAL HAEMORRHAGE [None]
  - FALL [None]
  - HAEMATOMA [None]
  - HAEMORRHAGE INTRACRANIAL [None]
  - HERNIA [None]
  - LOSS OF CONSCIOUSNESS [None]
